FAERS Safety Report 11236085 (Version 1)
Quarter: 2015Q3

REPORT INFORMATION
  Report Type: Report from Study
  Country: US (occurrence: US)
  Receive Date: 20150702
  Receipt Date: 20150702
  Transmission Date: 20151125
  Serious: Yes (Other)
  Sender: FDA-Public Use
  Company Number: US-BAXTER-2015BAX035544

PATIENT

DRUGS (1)
  1. TISSEEL VH [Suspect]
     Active Substance: FIBRINOGEN HUMAN\THROMBIN HUMAN
     Indication: HERNIA REPAIR
     Route: 061

REACTIONS (1)
  - Unevaluable event [Unknown]
